FAERS Safety Report 12672892 (Version 1)
Quarter: 2016Q3

REPORT INFORMATION
  Report Type: Spontaneous
  Country: None (occurrence: CN)
  Receive Date: 20160822
  Receipt Date: 20160822
  Transmission Date: 20161109
  Serious: Yes (Hospitalization)
  Sender: FDA-Public Use
  Company Number: CN-MERCK KGAA-1056578

PATIENT

DRUGS (1)
  1. NOVOTHYROX [Suspect]
     Active Substance: LEVOTHYROXINE SODIUM

REACTIONS (9)
  - Tremor [None]
  - Drug dose omission [None]
  - Cardiac discomfort [None]
  - Insomnia [None]
  - Palpitations [None]
  - Thyroxine increased [None]
  - Feeling cold [None]
  - Blood thyroid stimulating hormone increased [None]
  - Asthenia [None]
